FAERS Safety Report 7231446-4 (Version None)
Quarter: 2011Q1

REPORT INFORMATION
  Report Type: 
  Country: None (occurrence: None)
  Receive Date: 20110118
  Receipt Date: 20110114
  Transmission Date: 20110831
  Serious: Yes (Death, Hospitalization)
  Sender: FDA-Public Use
  Company Number: JP-PFIZER INC-2010168470

PATIENT
  Age: 81 Year
  Sex: Male
  Weight: 51 kg

DRUGS (16)
  1. MEDICON [Concomitant]
     Indication: INTERSTITIAL LUNG DISEASE
     Dosage: 15 MG, 3X/DAY
     Route: 048
     Dates: start: 20101102, end: 20101206
  2. WARFARIN [Concomitant]
     Indication: ATRIAL FIBRILLATION
     Dosage: 1 MG, 1X/DAY
     Route: 048
     Dates: start: 20070325, end: 20101127
  3. ZOLADEX [Concomitant]
     Indication: PROSTATE CANCER
     Dosage: 3.6 MG, MONTHLY
     Route: 058
     Dates: start: 20090228, end: 20101127
  4. SUTENT [Suspect]
     Indication: RENAL CELL CARCINOMA
     Dosage: 25 MG, 1X/DAY
     Route: 048
     Dates: start: 20101115, end: 20101124
  5. ZYLORIC ^GLAXO WELLCOME^ [Concomitant]
     Indication: HYPERURICAEMIA
     Dosage: 100 MG, 1X/DAY
     Route: 048
     Dates: start: 20070317, end: 20101128
  6. SIGMART [Concomitant]
     Indication: MYOCARDIAL INFARCTION
     Dosage: 5 MG, 3X/DAY
     Route: 048
     Dates: start: 20070317, end: 20101206
  7. DIOVANE [Concomitant]
     Indication: HYPERTENSION
     Dosage: 10 MG, 1X/DAY
     Route: 048
     Dates: start: 20070317, end: 20101206
  8. TAMSULOSIN HCL [Concomitant]
     Indication: BENIGN PROSTATIC HYPERPLASIA
     Dosage: 0.2 MG, 1X/DAY
     Route: 048
     Dates: start: 20071110, end: 20101206
  9. MUCOSTA [Concomitant]
     Indication: GASTRITIS
     Dosage: 100 MG, 3X/DAY
     Route: 048
     Dates: start: 20070317, end: 20101128
  10. MUCODYNE [Concomitant]
     Indication: CHRONIC OBSTRUCTIVE PULMONARY DISEASE
     Dosage: 250 MG, 3X/DAY
     Route: 048
     Dates: start: 20070317, end: 20101206
  11. DIART [Concomitant]
     Indication: CARDIAC FAILURE CONGESTIVE
     Dosage: 30 MG, 1X/DAY
     Route: 048
     Dates: start: 20070320, end: 20101130
  12. FLUVASTATIN [Concomitant]
     Indication: HYPERLIPIDAEMIA
     Dosage: 20 MG, 1X/DAY
     Route: 048
     Dates: start: 20070317, end: 20101128
  13. ASPIRIN [Concomitant]
     Indication: MYOCARDIAL INFARCTION
     Dosage: 100 MG, 1X/DAY
     Route: 048
     Dates: start: 20070317, end: 20101127
  14. MAGNESIUM OXIDE [Concomitant]
     Indication: CONSTIPATION
     Dosage: 330 MG, 3X/DAY
     Route: 048
     Dates: start: 20070318, end: 20101206
  15. DIGOXIN [Concomitant]
     Indication: ATRIAL FIBRILLATION
     Dosage: 0.062 MG, 1X/DAY
     Route: 048
     Dates: start: 20070402, end: 20101128
  16. MEDICON [Concomitant]
     Indication: COUGH

REACTIONS (6)
  - THROMBOCYTOPENIA [None]
  - HAEMATEMESIS [None]
  - PNEUMOTHORAX [None]
  - SHOCK HAEMORRHAGIC [None]
  - DECREASED APPETITE [None]
  - NAUSEA [None]
